FAERS Safety Report 6876939-4 (Version None)
Quarter: 2010Q3

REPORT INFORMATION
  Report Type: 
  Country: None (occurrence: None)
  Receive Date: 20100727
  Receipt Date: 20100713
  Transmission Date: 20110219
  Serious: Yes (Other)
  Sender: FDA-Public Use
  Company Number: US-ELI_LILLY_AND_COMPANY-US201007003723

PATIENT
  Sex: Female

DRUGS (2)
  1. FORTEO [Suspect]
     Indication: OSTEOPOROSIS
     Dosage: 20 UG, DAILY (1/D)
     Route: 065
     Dates: start: 20091001
  2. SYNTHROID [Concomitant]
     Dosage: 50 UG, DAILY (1/D)
     Route: 065

REACTIONS (3)
  - INJECTION SITE HAEMATOMA [None]
  - INJECTION SITE PAIN [None]
  - MALIGNANT MELANOMA [None]
